FAERS Safety Report 9263880 (Version 1)
Quarter: 2013Q2

REPORT INFORMATION
  Report Type: Spontaneous
  Country: GB (occurrence: GB)
  Receive Date: 20130430
  Receipt Date: 20130430
  Transmission Date: 20140414
  Serious: Yes (Other)
  Sender: FDA-Public Use
  Company Number: GB-GENZYME-CERZ-1002926

PATIENT
  Age: 75 Year
  Sex: Female

DRUGS (4)
  1. CEREZYME [Suspect]
     Indication: GAUCHER^S DISEASE
     Dosage: 4800 UNK, UNK
     Route: 042
  2. NORMAL SALINE [Concomitant]
     Indication: PRODUCT USED FOR UNKNOWN INDICATION
     Dosage: 250 ML, UNK
     Route: 042
  3. NORMAL SALINE [Concomitant]
     Dosage: 20 ML, UNK
     Route: 042
  4. WATER FOR INJECTION [Concomitant]
     Indication: PRODUCT USED FOR UNKNOWN INDICATION
     Dosage: 120 ML, UNK
     Route: 065

REACTIONS (7)
  - Blood pressure increased [Recovered/Resolved]
  - Tremor [Recovered/Resolved]
  - Feeling cold [Recovered/Resolved]
  - Heart rate decreased [Recovered/Resolved]
  - Respiratory rate decreased [Recovered/Resolved]
  - Malaise [Recovered/Resolved]
  - Cyanosis [Recovered/Resolved]
